FAERS Safety Report 8158796-1 (Version None)
Quarter: 2012Q1

REPORT INFORMATION
  Report Type: 
  Country: None (occurrence: None)
  Receive Date: 20120223
  Receipt Date: 20120208
  Transmission Date: 20120608
  Serious: Yes (Hospitalization)
  Sender: FDA-Public Use
  Company Number: PHHY2012DE013416

PATIENT
  Age: 40 Year
  Sex: Female

DRUGS (5)
  1. VALDOXAN [Suspect]
     Dosage: 500 MG, ONCE/SINGLE
     Route: 048
     Dates: start: 20120206
  2. MIRTAZAPINE [Suspect]
     Dosage: 5 DF, ONCE/SINGLE
     Route: 048
  3. OPIPRAMOL [Suspect]
     Dosage: 350-400 MG, ONCE/SINGLE
     Route: 048
     Dates: start: 20120206
  4. VALDOXAN [Suspect]
     Dosage: 25 MG, QD
     Route: 048
     Dates: start: 20110101, end: 20120205
  5. IBUPROFEN [Suspect]
     Dosage: 1.8-2.4 G, ONCE/SINGLE
     Route: 048
     Dates: start: 20120206

REACTIONS (4)
  - STRESS [None]
  - FATIGUE [None]
  - SOMNOLENCE [None]
  - MULTIPLE DRUG OVERDOSE INTENTIONAL [None]
